FAERS Safety Report 11157292 (Version 1)
Quarter: 2015Q2

REPORT INFORMATION
  Report Type: Spontaneous
  Country: IL (occurrence: IL)
  Receive Date: 20150603
  Receipt Date: 20150603
  Transmission Date: 20150821
  Serious: Yes (Hospitalization)
  Sender: FDA-Public Use
  Company Number: IL-ROCHE-1586635

PATIENT
  Age: 59 Year
  Sex: Male

DRUGS (3)
  1. RELVAR [Concomitant]
  2. XOLAIR [Suspect]
     Active Substance: OMALIZUMAB
     Indication: ASTHMA
     Route: 065
  3. AERIUS (ISRAEL) [Concomitant]

REACTIONS (3)
  - White blood cell count increased [Unknown]
  - Hypoaesthesia [Recovering/Resolving]
  - Eosinophil count increased [Unknown]
